FAERS Safety Report 21474855 (Version 6)
Quarter: 2022Q4

REPORT INFORMATION
  Report Type: Report from Study
  Country: US (occurrence: US)
  Receive Date: 20221018
  Receipt Date: 20221212
  Transmission Date: 20230113
  Serious: No
  Sender: FDA-Public Use
  Company Number: US-ABBVIE-22K-163-4466338-00

PATIENT
  Sex: Female

DRUGS (2)
  1. IBRUTINIB [Suspect]
     Active Substance: IBRUTINIB
     Indication: Chronic lymphocytic leukaemia
     Route: 048
  2. MAGNESIUM [Concomitant]
     Active Substance: MAGNESIUM
     Indication: Product used for unknown indication
     Dosage: SUPPLEMENTS

REACTIONS (19)
  - Lymphadenopathy [Unknown]
  - Contusion [Not Recovered/Not Resolved]
  - Petechiae [Not Recovered/Not Resolved]
  - Sinusitis [Unknown]
  - Rash [Not Recovered/Not Resolved]
  - Nausea [Unknown]
  - Headache [Recovered/Resolved]
  - Cough [Not Recovered/Not Resolved]
  - Oral herpes [Not Recovered/Not Resolved]
  - Rash [Recovered/Resolved]
  - Pain [Recovered/Resolved]
  - Platelet count decreased [Not Recovered/Not Resolved]
  - Paranasal sinus hypersecretion [Not Recovered/Not Resolved]
  - Blister [Unknown]
  - Aphthous ulcer [Not Recovered/Not Resolved]
  - Haemorrhage [Unknown]
  - Sputum discoloured [Not Recovered/Not Resolved]
  - Muscle spasms [Not Recovered/Not Resolved]
  - Infection [Unknown]
